FAERS Safety Report 23853997 (Version 1)
Quarter: 2024Q2

REPORT INFORMATION
  Report Type: Spontaneous
  Country: US (occurrence: US)
  Receive Date: 20240514
  Receipt Date: 20240514
  Transmission Date: 20240715
  Serious: Yes (Other)
  Sender: FDA-Public Use
  Company Number: US-AERIE PHARMACEUTICALS-US-2022-002595

PATIENT
  Age: 22 Year
  Sex: Female

DRUGS (5)
  1. RHOPRESSA [Suspect]
     Active Substance: NETARSUDIL MESYLATE
     Indication: Open angle glaucoma
     Dosage: UNK, OU
     Route: 047
  2. RHOPRESSA [Suspect]
     Active Substance: NETARSUDIL MESYLATE
     Indication: Intraocular pressure increased
  3. BRIMONIDINE [Concomitant]
     Active Substance: BRIMONIDINE TARTRATE
     Indication: Corneal oedema
     Dosage: 0.15% BID
     Route: 065
  4. DORZOLAMIDE\TIMOLOL [Concomitant]
     Active Substance: DORZOLAMIDE\TIMOLOL
     Indication: Corneal oedema
     Dosage: 22.3 TO 6.8 MG/ML BID,
     Route: 065
  5. LATANOPROST [Concomitant]
     Active Substance: LATANOPROST
     Indication: Corneal oedema
     Dosage: UNK UNK, OU, QHS
     Route: 047

REACTIONS (2)
  - Corneal oedema [Recovered/Resolved]
  - Intraocular pressure increased [Unknown]
